FAERS Safety Report 10064193 (Version 3)
Quarter: 2014Q2

REPORT INFORMATION
  Report Type: Report from Study
  Country: JP (occurrence: JP)
  Receive Date: 20140408
  Receipt Date: 20140620
  Transmission Date: 20141212
  Serious: Yes (Hospitalization)
  Sender: FDA-Public Use
  Company Number: JP-JNJFOC-20140318964

PATIENT
  Age: 64 Year
  Sex: Female

DRUGS (21)
  1. STELARA [Suspect]
     Indication: PSORIASIS
     Route: 058
     Dates: start: 20130301, end: 20130301
  2. STELARA [Suspect]
     Indication: PSORIASIS
     Route: 058
     Dates: start: 20120914, end: 20120914
  3. STELARA [Suspect]
     Indication: PSORIASIS
     Route: 058
     Dates: start: 20120622, end: 20120622
  4. STELARA [Suspect]
     Indication: PSORIASIS
     Route: 058
     Dates: start: 20120330, end: 20120330
  5. STELARA [Suspect]
     Indication: PSORIASIS
     Route: 058
     Dates: start: 20120302, end: 20120302
  6. STELARA [Suspect]
     Indication: PSORIASIS
     Route: 058
     Dates: start: 20130527, end: 20130527
  7. STELARA [Suspect]
     Indication: PSORIASIS
     Route: 058
     Dates: start: 20130816, end: 20130816
  8. STELARA [Suspect]
     Indication: PSORIASIS
     Route: 058
     Dates: start: 20121207, end: 20121207
  9. ALLELOCK [Concomitant]
     Indication: PSORIASIS
     Route: 048
     Dates: start: 20110916
  10. LOXONIN [Concomitant]
     Route: 048
     Dates: start: 20110720
  11. MUCOSTA [Concomitant]
     Indication: PROPHYLAXIS
     Route: 048
     Dates: start: 20110720
  12. ANTEBATE [Concomitant]
     Indication: PSORIASIS
     Route: 061
     Dates: start: 20110902
  13. ANTEBATE [Concomitant]
     Indication: PSORIASIS
     Route: 061
  14. DOVONEX [Concomitant]
     Indication: PSORIASIS
     Route: 061
     Dates: start: 20110902, end: 20120914
  15. DOVONEX [Concomitant]
     Indication: PSORIASIS
     Route: 061
  16. ANTEBATE [Concomitant]
     Indication: PSORIASIS
     Route: 061
     Dates: start: 20110902
  17. ANTEBATE [Concomitant]
     Indication: PSORIASIS
     Route: 061
  18. DRENISON [Concomitant]
     Indication: PSORIASIS
     Route: 062
     Dates: start: 20111111, end: 20121109
  19. DERMOVATE [Concomitant]
     Indication: PSORIASIS
     Route: 061
     Dates: start: 20121026
  20. PETROLATUM SALICYLATE [Concomitant]
     Indication: PSORIASIS
     Route: 065
     Dates: start: 20121026
  21. LULICONAZOLE [Concomitant]
     Indication: PSORIASIS
     Route: 061
     Dates: start: 20130118, end: 20130301

REACTIONS (1)
  - Cellulitis [Recovering/Resolving]
